APPROVED DRUG PRODUCT: KETOPROFEN
Active Ingredient: KETOPROFEN
Strength: 200MG
Dosage Form/Route: CAPSULE, EXTENDED RELEASE;ORAL
Application: A074879 | Product #001
Applicant: ALKERMES GAINESVILLE LLC
Approved: Dec 10, 1997 | RLD: No | RS: No | Type: DISCN